FAERS Safety Report 5446928-5 (Version None)
Quarter: 2007Q3

REPORT INFORMATION
  Report Type: 
  Country: None (occurrence: None)
  Receive Date: 20070907
  Receipt Date: 20070815
  Transmission Date: 20080115
  Serious: Yes (Other)
  Sender: FDA-Public Use
  Company Number: CZ-MERCK-0708CZE00005

PATIENT
  Sex: Male

DRUGS (7)
  1. CRIXIVAN [Suspect]
     Indication: HIV INFECTION
     Route: 048
  2. STOCRIN [Suspect]
     Indication: HIV INFECTION
     Route: 048
  3. SAQUINAVIR [Suspect]
     Indication: HIV INFECTION
     Route: 065
  4. ZIDOVUDINE [Suspect]
     Indication: HIV INFECTION
     Route: 065
  5. ZALCITABINE [Suspect]
     Indication: HIV INFECTION
     Route: 065
  6. STAVUDINE [Suspect]
     Indication: HIV INFECTION
     Route: 065
  7. LAMIVUDINE [Suspect]
     Indication: HIV INFECTION
     Route: 065

REACTIONS (1)
  - DRUG RESISTANCE [None]
